FAERS Safety Report 6964562-2 (Version None)
Quarter: 2010Q3

REPORT INFORMATION
  Report Type: 
  Country: None (occurrence: None)
  Receive Date: 20100903
  Receipt Date: 20100827
  Transmission Date: 20110219
  Serious: Yes (Other)
  Sender: FDA-Public Use
  Company Number: BR-BAYER-201018377LA

PATIENT
  Age: 29 Year
  Sex: Female
  Weight: 72 kg

DRUGS (1)
  1. MIRENA [Suspect]
     Indication: CONTRACEPTION
     Dosage: FREQUENCY: CONTINUOUS. MIRENA WAS INSERTED ON 4TH DAY OF MENSTRUAL CYCLE.
     Route: 015
     Dates: start: 20100823

REACTIONS (7)
  - ASTHENOPIA [None]
  - BACK PAIN [None]
  - EYE PAIN [None]
  - HEAD DISCOMFORT [None]
  - HEMICEPHALALGIA [None]
  - MOOD ALTERED [None]
  - SCINTILLATING SCOTOMA [None]
